FAERS Safety Report 14014750 (Version 1)
Quarter: 2017Q3

REPORT INFORMATION
  Report Type: Spontaneous
  Country: US (occurrence: US)
  Receive Date: 20170927
  Receipt Date: 20170927
  Transmission Date: 20171128
  Serious: No
  Sender: FDA-Public Use
  Company Number: US-PFIZER INC-2017416091

PATIENT
  Age: 44 Year
  Sex: Female

DRUGS (2)
  1. METHOTREXATE SODIUM. [Suspect]
     Active Substance: METHOTREXATE SODIUM
     Indication: RHEUMATOID ARTHRITIS
     Dosage: UNK
     Dates: start: 201607, end: 201610
  2. PREDNISONE. [Concomitant]
     Active Substance: PREDNISONE
     Dosage: 5 DF, DAILY (5 TABS ONCE A DAY)

REACTIONS (1)
  - Drug ineffective [Unknown]
